FAERS Safety Report 9439850 (Version 1)
Quarter: 2013Q3

REPORT INFORMATION
  Report Type: Spontaneous
  Country: DK (occurrence: DK)
  Receive Date: 20130805
  Receipt Date: 20130805
  Transmission Date: 20140515
  Serious: Yes (Life-Threatening, Hospitalization, Disabling)
  Sender: FDA-Public Use
  Company Number: DK-JNJFOC-20130716013

PATIENT
  Age: 11 Year
  Sex: Male
  Weight: 50 kg

DRUGS (1)
  1. CONCERTA [Suspect]
     Indication: ATTENTION DEFICIT/HYPERACTIVITY DISORDER
     Route: 048
     Dates: end: 20130710

REACTIONS (7)
  - Acute myocardial infarction [Recovered/Resolved with Sequelae]
  - Intracardiac thrombus [Recovered/Resolved with Sequelae]
  - Ventricular hypokinesia [Not Recovered/Not Resolved]
  - Implantable defibrillator insertion [Unknown]
  - Coronary artery stenosis [Unknown]
  - Ventricular fibrillation [Unknown]
  - Ejection fraction decreased [Not Recovered/Not Resolved]
